FAERS Safety Report 9785618 (Version 2)
Quarter: 2014Q1

REPORT INFORMATION
  Report Type: Spontaneous
  Country: FR (occurrence: None)
  Receive Date: 20131224
  Receipt Date: 20140218
  Transmission Date: 20141002
  Serious: Yes (Other)
  Sender: FDA-Public Use
  Company Number: NGX_02174_2013

PATIENT
  Age: 46 Year
  Sex: Male
  Weight: 96 kg

DRUGS (2)
  1. QUTENZA [Suspect]
     Indication: NEUROPATHY PERIPHERAL
     Dosage: ( 1DF PATCH, TOPICAL)
     Route: 061
     Dates: start: 201311, end: 20131128
  2. QUTENZA [Suspect]
     Indication: OFF LABEL USE
     Dosage: ( 1DF PATCH, TOPICAL)
     Route: 061
     Dates: start: 201311, end: 20131128

REACTIONS (4)
  - Burns second degree [None]
  - Application site burn [None]
  - Application site erythema [None]
  - Application site pain [None]
